FAERS Safety Report 6441207-1 (Version None)
Quarter: 2009Q4

REPORT INFORMATION
  Report Type: 
  Country: None (occurrence: None)
  Receive Date: 20091116
  Receipt Date: 20091102
  Transmission Date: 20100525
  Serious: Yes (Death, Other)
  Sender: FDA-Public Use
  Company Number: GB-PFIZER INC-2009289725

PATIENT
  Age: 72 Year
  Sex: Male

DRUGS (5)
  1. SERTRALINE HCL [Suspect]
     Indication: DEPRESSION
     Dosage: 50 MG, UNK
  2. AMANTADINE [Suspect]
     Indication: HICCUPS
     Dosage: 100 MG, ONCE DAILY
  3. AMANTADINE [Suspect]
     Indication: PARKINSON'S DISEASE
     Dosage: 200 MG, TWICE DAILY
  4. LEVODOPA W/BENSERAZIDE/ [Suspect]
     Indication: PARKINSON'S DISEASE
     Dosage: BENSERAZIDE 25 MG/LEVODOPA 100 MG, TWICE DAILY
  5. BACLOFEN [Suspect]
     Indication: HICCUPS
     Dosage: 10 MG, TWICE DAILY

REACTIONS (7)
  - CEREBROVASCULAR ACCIDENT [None]
  - CIRCULATORY COLLAPSE [None]
  - DEPRESSION [None]
  - HICCUPS [None]
  - HYPONATRAEMIA [None]
  - INSOMNIA [None]
  - ORTHOSTATIC HYPOTENSION [None]
